FAERS Safety Report 5484893-5 (Version None)
Quarter: 2007Q4

REPORT INFORMATION
  Report Type: 
  Country: None (occurrence: None)
  Receive Date: 20071010
  Receipt Date: 20070925
  Transmission Date: 20080405
  Serious: Yes (Hospitalization)
  Sender: FDA-Public Use
  Company Number: B0489734A

PATIENT
  Age: 79 Year
  Sex: Female

DRUGS (2)
  1. DIGOXIN [Suspect]
  2. BETA-BLOCKER (FORMULATION UNKNOWN) (BETA-BLOCKER) [Suspect]

REACTIONS (1)
  - HYPERKALAEMIA [None]
